FAERS Safety Report 15967102 (Version 1)
Quarter: 2019Q1

REPORT INFORMATION
  Report Type: Spontaneous
  Country: US (occurrence: US)
  Receive Date: 20190215
  Receipt Date: 20190215
  Transmission Date: 20190418
  Serious: Yes (Death)
  Sender: FDA-Public Use
  Company Number: None

PATIENT
  Age: 46 Year
  Sex: Female
  Weight: 103.95 kg

DRUGS (9)
  1. ADDERALL [Concomitant]
     Active Substance: AMPHETAMINE ASPARTATE\AMPHETAMINE SULFATE\DEXTROAMPHETAMINE SACCHARATE\DEXTROAMPHETAMINE SULFATE
  2. TESSALON [Concomitant]
     Active Substance: BENZONATATE
  3. ATIVAN [Concomitant]
     Active Substance: LORAZEPAM
  4. ALECENSA [Concomitant]
     Active Substance: ALECTINIB HYDROCHLORIDE
  5. ATPVAQUONE [Concomitant]
  6. KEPPRA [Concomitant]
     Active Substance: LEVETIRACETAM
  7. LORBRENA [Suspect]
     Active Substance: LORLATINIB
     Indication: LUNG NEOPLASM MALIGNANT
     Route: 048
     Dates: start: 20181205
  8. LISINORPIL [Concomitant]
  9. DECADRON [Concomitant]
     Active Substance: DEXAMETHASONE

REACTIONS (1)
  - Disease progression [None]
